FAERS Safety Report 24152171 (Version 1)
Quarter: 2024Q3

REPORT INFORMATION
  Report Type: Spontaneous
  Country: BE (occurrence: None)
  Receive Date: 20240730
  Receipt Date: 20240730
  Transmission Date: 20241017
  Serious: Yes (Hospitalization)
  Sender: ASTRAZENECA
  Company Number: 2024A166231

PATIENT
  Age: 86 Year
  Sex: Male
  Weight: 54.1 kg

DRUGS (14)
  1. DAPAGLIFLOZIN [Suspect]
     Active Substance: DAPAGLIFLOZIN
     Indication: Cardiac failure
     Route: 048
     Dates: start: 20231215, end: 20240219
  2. DAPAGLIFLOZIN [Suspect]
     Active Substance: DAPAGLIFLOZIN
     Indication: Ejection fraction abnormal
     Route: 048
     Dates: start: 20231215, end: 20240219
  3. GLIQUIDONE [Concomitant]
     Active Substance: GLIQUIDONE
     Dosage: AT 8 AM - 12 - 8 PM3.0DF UNKNOWN
  4. PERINDOPRIL [Concomitant]
     Active Substance: PERINDOPRIL
     Dosage: AT 8 AM1.0DF UNKNOWN
  5. CORDARONE [Concomitant]
     Active Substance: AMIODARONE HYDROCHLORIDE
     Dosage: AT 8 AM1.0DF UNKNOWN
  6. ACTRAPID [Concomitant]
     Active Substance: INSULIN HUMAN
     Dosage: SELON SCH?MA3.0DF UNKNOWN
  7. BISOPROLOL [Concomitant]
     Active Substance: BISOPROLOL\BISOPROLOL FUMARATE
     Dosage: AT 8 AM1.0DF UNKNOWN
  8. ELIQUIS [Concomitant]
     Active Substance: APIXABAN
     Dosage: 2 DF SWITH TO ASAFLOW
     Dates: start: 20240325
  9. ASPIRIN [Concomitant]
     Active Substance: ASPIRIN
     Dates: start: 202406
  10. BUMETANIDE [Concomitant]
     Active Substance: BUMETANIDE
     Dosage: AT 8 AM1.0DF UNKNOWN
  11. LINAGLIPTIN [Concomitant]
     Active Substance: LINAGLIPTIN
     Dosage: AT 8 AM1.0DF UNKNOWN
  12. ESOMEPRAZOLE [Concomitant]
     Active Substance: ESOMEPRAZOLE
     Dosage: AT 8 AM1.0DF UNKNOWN
  13. MELATONIN [Concomitant]
     Active Substance: MELATONIN
     Dosage: AT 8 PM1.0DF UNKNOWN
  14. TRAZODONE [Concomitant]
     Active Substance: TRAZODONE HYDROCHLORIDE
     Dosage: AT 8 PM1.0DF UNKNOWN

REACTIONS (2)
  - Foot amputation [Not Recovered/Not Resolved]
  - Toe amputation [Not Recovered/Not Resolved]

NARRATIVE: CASE EVENT DATE: 20240424
